FAERS Safety Report 10697404 (Version 1)
Quarter: 2015Q1

REPORT INFORMATION
  Report Type: Spontaneous
  Country: US (occurrence: None)
  Receive Date: 20150107
  Receipt Date: 20150107
  Transmission Date: 20150721
  Serious: Yes (Disabling)
  Sender: FDA-Public Use
  Company Number: None

PATIENT
  Age: 65 Year
  Sex: Male
  Weight: 87.54 kg

DRUGS (2)
  1. XARELTO [Suspect]
     Active Substance: RIVAROXABAN
     Indication: PROPHYLAXIS
     Dosage: 1
     Route: 048
     Dates: start: 20140315, end: 20150103
  2. XARELTO [Suspect]
     Active Substance: RIVAROXABAN
     Indication: PULMONARY EMBOLISM
     Dosage: 1
     Route: 048
     Dates: start: 20140315, end: 20150103

REACTIONS (3)
  - Rectal haemorrhage [None]
  - Gingival bleeding [None]
  - Haemorrhoids [None]

NARRATIVE: CASE EVENT DATE: 20150103
